FAERS Safety Report 9551564 (Version 1)
Quarter: 2013Q3

REPORT INFORMATION
  Report Type: Spontaneous
  Country: US (occurrence: None)
  Receive Date: 20130923
  Receipt Date: 20130923
  Transmission Date: 20140515
  Serious: Yes (Other)
  Sender: FDA-Public Use
  Company Number: None

PATIENT
  Age: 56 Year
  Sex: 0

DRUGS (3)
  1. KENALOG [Suspect]
     Dates: start: 20130918, end: 20130918
  2. CYTOMEDROL [Concomitant]
  3. XOPENEX [Concomitant]

REACTIONS (4)
  - Pain [None]
  - Headache [None]
  - Dizziness [None]
  - Drug ineffective [None]
